FAERS Safety Report 6217654-X (Version None)
Quarter: 2009Q2

REPORT INFORMATION
  Report Type: 
  Country: None (occurrence: None)
  Receive Date: 20090603
  Receipt Date: 20090603
  Transmission Date: 20091009
  Serious: Yes (Life-Threatening, Hospitalization)
  Sender: FDA-Public Use
  Company Number: None

PATIENT
  Age: 86 Year
  Sex: Male
  Weight: 68.9467 kg

DRUGS (1)
  1. DIGITEK  ACTAVIS TOTOWA LLC. HE HAD RECEIVED A PRESCRIPTION OF DIGITEK [Suspect]
     Indication: CARDIAC DISORDER
     Dosage: 250 MCG 1 TIME DAILY DATE FILLED 9/27/2008
     Dates: start: 20080927

REACTIONS (5)
  - ABASIA [None]
  - ASTHENIA [None]
  - CARDIOACTIVE DRUG LEVEL INCREASED [None]
  - PAIN [None]
  - PRODUCT QUALITY ISSUE [None]
